FAERS Safety Report 18266576 (Version 1)
Quarter: 2020Q3

REPORT INFORMATION
  Report Type: Other
  Country: CR (occurrence: CR)
  Receive Date: 20200915
  Receipt Date: 20200915
  Transmission Date: 20201103
  Serious: Yes (Other)
  Sender: FDA-Public Use
  Company Number: CR-ROCHE-2675657

PATIENT

DRUGS (7)
  1. 5?FU [Suspect]
     Active Substance: FLUOROURACIL
     Dosage: CONTINUOUS INFUSION EVERY 15 DAYS
     Route: 065
  2. IRINOTECAN [Suspect]
     Active Substance: IRINOTECAN
     Indication: COLORECTAL CANCER METASTATIC
     Dosage: ON DAY 1
     Route: 065
  3. 5?FU [Suspect]
     Active Substance: FLUOROURACIL
     Indication: COLORECTAL CANCER METASTATIC
     Dosage: BOLUS.?ON DAY 1
     Route: 065
  4. 5?FU [Suspect]
     Active Substance: FLUOROURACIL
     Dosage: EVERY 21 DAYS.
     Route: 065
  5. CAPECITABINE. [Suspect]
     Active Substance: CAPECITABINE
     Indication: COLORECTAL CANCER METASTATIC
     Dosage: FOR 14 DAYS
     Route: 065
  6. LEUCOVORIN. [Suspect]
     Active Substance: LEUCOVORIN
     Indication: COLORECTAL CANCER METASTATIC
     Dosage: ON DAY 1
     Route: 065
  7. OXALIPLATIN. [Suspect]
     Active Substance: OXALIPLATIN
     Indication: COLORECTAL CANCER METASTATIC
     Dosage: ON DAY 1
     Route: 065

REACTIONS (11)
  - Neuropathy peripheral [Unknown]
  - Nausea [Unknown]
  - Anaemia [Unknown]
  - Thrombocytopenia [Unknown]
  - Diarrhoea [Unknown]
  - Palmar-plantar erythrodysaesthesia syndrome [Unknown]
  - Vomiting [Unknown]
  - Neutropenia [Unknown]
  - Fatigue [Unknown]
  - Mucosal inflammation [Unknown]
  - Weight decreased [Unknown]
